FAERS Safety Report 6121221-6 (Version None)
Quarter: 2009Q1

REPORT INFORMATION
  Report Type: 
  Country: None (occurrence: None)
  Receive Date: 20090312
  Receipt Date: 20080131
  Transmission Date: 20090719
  Serious: Yes (Other)
  Sender: FDA-Public Use
  Company Number: DAV-AE-HCTZ-08-001

PATIENT
  Age: 66 Year
  Sex: Male

DRUGS (5)
  1. HYDROCHLOROTHIAZIDE [Suspect]
     Indication: VASCULITIS
  2. TOPICAL STEROIDS [Concomitant]
  3. ORAL ANTIHISTAMINES [Concomitant]
  4. ANTIBACTERIALS [Concomitant]
  5. RADIX SALVIAE MILTIORRHIZAE [Concomitant]

REACTIONS (5)
  - BREAST CANCER MALE [None]
  - ERYTHEMA [None]
  - LYMPHADENOPATHY [None]
  - OEDEMA PERIPHERAL [None]
  - SKIN CANCER METASTATIC [None]
